FAERS Safety Report 4421037-2 (Version None)
Quarter: 2004Q3

REPORT INFORMATION
  Report Type: 
  Country: None (occurrence: None)
  Receive Date: 20040809
  Receipt Date: 20031212
  Transmission Date: 20050211
  Serious: Yes (Death, Hospitalization)
  Sender: FDA-Public Use
  Company Number: PHRM2003FR03300

PATIENT
  Age: 85 Year
  Sex: Female

DRUGS (5)
  1. MELLARIL [Suspect]
     Dosage: 8 DRP MORN+MID, 10 DRP EVENING
     Route: 048
  2. LYSANXIA [Concomitant]
     Dosage: 5 DRP, TID
     Route: 048
  3. RYTHMODAN - SLOW RELEASE [Concomitant]
     Dosage: 125 MG, BID
     Route: 048
  4. TANAKAN [Concomitant]
     Dosage: 2 DF, TID
  5. SEROPRAM [Concomitant]
     Dosage: 10 MG, BID
     Route: 048

REACTIONS (21)
  - ABDOMINAL PAIN [None]
  - ABNORMAL BEHAVIOUR [None]
  - ANOREXIA [None]
  - ASCITES [None]
  - BRONCHOPNEUMOPATHY [None]
  - DEATH [None]
  - FAECES DISCOLOURED [None]
  - FLATULENCE [None]
  - GASTROINTESTINAL MOTILITY DISORDER [None]
  - GASTROINTESTINAL OEDEMA [None]
  - GENERAL PHYSICAL HEALTH DETERIORATION [None]
  - HAEMORRHOIDS [None]
  - HIATUS HERNIA [None]
  - HYDRONEPHROSIS [None]
  - ILEUS PARALYTIC [None]
  - IMPAIRED GASTRIC EMPTYING [None]
  - MOANING [None]
  - TACHYPNOEA [None]
  - URINARY RETENTION [None]
  - URINARY TRACT DISORDER [None]
  - WEIGHT DECREASED [None]
